FAERS Safety Report 4935755-0 (Version None)
Quarter: 2006Q1

REPORT INFORMATION
  Report Type: 
  Country: None (occurrence: None)
  Receive Date: 20060307
  Receipt Date: 20051123
  Transmission Date: 20060701
  Serious: No
  Sender: FDA-Public Use
  Company Number: US-GLAXOSMITHKLINE-A0584149A

PATIENT
  Age: 65 Year
  Sex: Female

DRUGS (2)
  1. REQUIP [Suspect]
     Indication: RESTLESS LEGS SYNDROME
     Dosage: .5MG AT NIGHT
     Route: 048
     Dates: start: 20051115
  2. PAXIL [Concomitant]

REACTIONS (2)
  - INSOMNIA [None]
  - PALPITATIONS [None]
